FAERS Safety Report 24698388 (Version 1)
Quarter: 2024Q4

REPORT INFORMATION
  Report Type: Spontaneous
  Country: US (occurrence: US)
  Receive Date: 20241204
  Receipt Date: 20241204
  Transmission Date: 20250115
  Serious: No
  Sender: PRIMUS PHARMACEUTICALS
  Company Number: US-PRIMUS-2023-US-042781

PATIENT
  Age: 75 Year
  Sex: Female

DRUGS (1)
  1. IMPOYZ [Suspect]
     Active Substance: CLOBETASOL PROPIONATE
     Indication: Psoriasis
     Dosage: APPLY TOPICALLY TO THE AFFECTED AREA(S) TO ELBOWS TWICE A DAY FOR 2 WEEKS THEN 2 WEEKS OFF THEN REPE
     Route: 061
     Dates: start: 20231025, end: 20231113

REACTIONS (1)
  - Drug ineffective [Not Recovered/Not Resolved]

NARRATIVE: CASE EVENT DATE: 20231025
